FAERS Safety Report 8602675-X (Version None)
Quarter: 2012Q3

REPORT INFORMATION
  Report Type: 
  Country: None (occurrence: None)
  Receive Date: 20120817
  Receipt Date: 20120809
  Transmission Date: 20120928
  Serious: Yes (Other)
  Sender: FDA-Public Use
  Company Number: JP-SANOFI-AVENTIS-2012SA059105

PATIENT
  Age: 63 Year
  Sex: Male

DRUGS (1)
  1. ZOLPIDEM [Suspect]
     Route: 048

REACTIONS (2)
  - DIPLOPIA [None]
  - EYE MOVEMENT DISORDER [None]
